FAERS Safety Report 8267031-5 (Version None)
Quarter: 2012Q2

REPORT INFORMATION
  Report Type: 
  Country: None (occurrence: None)
  Receive Date: 20120409
  Receipt Date: 20120404
  Transmission Date: 20120825
  Serious: No
  Sender: FDA-Public Use
  Company Number: US-PFIZER INC-2012056969

PATIENT
  Sex: Male
  Weight: 81.633 kg

DRUGS (6)
  1. TOPROL-XL [Concomitant]
     Dosage: UNK
  2. HYDROCODONE [Concomitant]
     Indication: PAIN
     Dosage: UNK
  3. CHANTIX [Suspect]
     Dosage: UNK
  4. CELEXA [Concomitant]
     Indication: DEPRESSION
     Dosage: UNK
  5. CHANTIX [Suspect]
     Indication: SMOKING CESSATION THERAPY
     Dosage: 0.5 MG, 1X/DAY
     Route: 048
     Dates: start: 20080101, end: 20090101
  6. ACCUPRIL [Concomitant]
     Dosage: UNK

REACTIONS (2)
  - DRUG INEFFECTIVE [None]
  - MOOD ALTERED [None]
